FAERS Safety Report 5626247-4 (Version None)
Quarter: 2008Q1

REPORT INFORMATION
  Report Type: 
  Country: None (occurrence: None)
  Receive Date: 20080214
  Receipt Date: 20080213
  Transmission Date: 20080703
  Serious: Yes (Other)
  Sender: FDA-Public Use
  Company Number: D0055935A

PATIENT
  Age: 22 Year
  Sex: Female
  Weight: 70 kg

DRUGS (2)
  1. LAMICTAL [Suspect]
     Dosage: 50MG UNKNOWN
     Route: 048
     Dates: start: 20080125, end: 20080125
  2. ALCOHOL [Suspect]
     Route: 048
     Dates: start: 20080125, end: 20080125

REACTIONS (5)
  - HYPERVENTILATION [None]
  - PSYCHOMOTOR RETARDATION [None]
  - RESPIRATORY RATE INCREASED [None]
  - SUICIDE ATTEMPT [None]
  - VOMITING [None]
